FAERS Safety Report 6561173-8 (Version None)
Quarter: 2010Q1

REPORT INFORMATION
  Report Type: 
  Country: None (occurrence: None)
  Receive Date: 20100130
  Receipt Date: 20091013
  Transmission Date: 20100710
  Serious: Yes (Hospitalization)
  Sender: FDA-Public Use
  Company Number: US-ABBOTT-09P-163-0600833-00

PATIENT
  Sex: Female
  Weight: 86.26 kg

DRUGS (4)
  1. HUMIRA [Suspect]
     Indication: RHEUMATOID ARTHRITIS
  2. HUMIRA [Suspect]
     Indication: PSORIATIC ARTHROPATHY
  3. SULFASALAZINE [Concomitant]
     Indication: DRUG USE FOR UNKNOWN INDICATION
  4. METHIMAZOLE [Concomitant]
     Indication: HYPERTHYROIDISM

REACTIONS (5)
  - ARTHRALGIA [None]
  - FURUNCLE [None]
  - INSOMNIA [None]
  - PERINEAL INFECTION [None]
  - STAPHYLOCOCCAL INFECTION [None]
